FAERS Safety Report 18176355 (Version 1)
Quarter: 2020Q3

REPORT INFORMATION
  Report Type: Spontaneous
  Country: AU (occurrence: AU)
  Receive Date: 20200820
  Receipt Date: 20200820
  Transmission Date: 20201103
  Serious: Yes (Life-Threatening, Hospitalization)
  Sender: FDA-Public Use
  Company Number: AU-MYLANLABS-2020M1072250

PATIENT
  Age: 55 Year
  Sex: Female

DRUGS (13)
  1. HYDROCORTISONE. [Concomitant]
     Active Substance: HYDROCORTISONE
     Indication: SEPTIC SHOCK
     Dosage: UNK
     Route: 065
  2. ESOMEPRAZOLE. [Concomitant]
     Active Substance: ESOMEPRAZOLE MAGNESIUM
     Indication: UPPER GASTROINTESTINAL HAEMORRHAGE
  3. PAROXETINE. [Suspect]
     Active Substance: PAROXETINE
     Indication: PRODUCT USED FOR UNKNOWN INDICATION
     Dosage: 1600 MILLIGRAM THE WOMAN INTENTIONALLY INGESTED PAROXETINE AT AN OVERDOSE
     Route: 048
  4. OXYCODONE [Suspect]
     Active Substance: OXYCODONE
     Indication: PRODUCT USED FOR UNKNOWN INDICATION
     Dosage: 75 MILLIGRAM THE WOMAN INTENTIONALLY INGESTED OXYCODONE AT AN OVERDOSE
     Route: 048
  5. CALCIUM CHLORIDE. [Concomitant]
     Active Substance: CALCIUM CHLORIDE
     Indication: HYPERKALAEMIA
     Dosage: UNK
     Route: 042
  6. DANTROLENE. [Concomitant]
     Active Substance: DANTROLENE SODIUM
     Indication: SEROTONIN SYNDROME
  7. TEMAZEPAM. [Suspect]
     Active Substance: TEMAZEPAM
     Indication: PRODUCT USED FOR UNKNOWN INDICATION
     Dosage: 120 MILLIGRAM THE WOMAN INTENTIONALLY INGESTED TEMAZEPAM AT AN OVERDOSE
     Route: 048
  8. INSULIN [Concomitant]
     Active Substance: INSULIN NOS
     Indication: HYPERKALAEMIA
  9. AMOXICILLIN CLAVULANIC ACID [Concomitant]
     Active Substance: AMOXICILLIN\CLAVULANIC ACID
     Indication: PNEUMONIA ASPIRATION
     Dosage: UNK
     Route: 065
  10. OXAZEPAM. [Suspect]
     Active Substance: OXAZEPAM
     Indication: PRODUCT USED FOR UNKNOWN INDICATION
     Dosage: 80 MILLIGRAM THE WOMAN INTENTIONALLY INGESTED OXAZEPAM AT AN OVERDOSE
     Route: 048
  11. ACTIVATED CHARCOAL. [Concomitant]
     Active Substance: ACTIVATED CHARCOAL
     Indication: EXPOSURE TO TOXIC AGENT
     Dosage: ADMINISTERED VIA A NASOGASTRIC TUBE
     Route: 065
  12. GLUCOSE [Concomitant]
     Active Substance: DEXTROSE
     Indication: HYPERKALAEMIA
  13. TOBRAMYCIN. [Concomitant]
     Active Substance: TOBRAMYCIN
     Indication: SEPTIC SHOCK
     Dosage: UNK
     Route: 065

REACTIONS (33)
  - Toxicity to various agents [Recovered/Resolved]
  - Oesophageal ulcer [Recovered/Resolved]
  - Hyperthermia [Recovered/Resolved]
  - Clonus [Recovered/Resolved]
  - Polyneuropathy [Recovered/Resolved]
  - Pneumonia [Recovered/Resolved]
  - Fatigue [Recovered/Resolved]
  - Leukopenia [Recovered/Resolved]
  - Eye disorder [Recovered/Resolved]
  - Serotonin syndrome [Recovered/Resolved]
  - Escherichia infection [Recovered/Resolved]
  - Respiratory acidosis [Recovered/Resolved]
  - Delirium [Recovered/Resolved]
  - Respiratory disorder [Recovered/Resolved]
  - Memory impairment [Recovered/Resolved]
  - Cardiac arrest [Recovered/Resolved]
  - Gastric ulcer [Recovered/Resolved]
  - Upper gastrointestinal haemorrhage [Recovered/Resolved]
  - Thrombocytopenia [Recovered/Resolved]
  - Hyperkalaemia [Recovered/Resolved]
  - Extensor plantar response [Recovered/Resolved]
  - Intentional overdose [Recovered/Resolved]
  - Septic shock [Recovered/Resolved]
  - Pneumonia aspiration [Recovered/Resolved]
  - Coagulopathy [Recovered/Resolved]
  - Areflexia [Recovered/Resolved]
  - Respiratory depression [Recovered/Resolved]
  - Sepsis [Recovered/Resolved]
  - Staphylococcal infection [Recovered/Resolved]
  - Distributive shock [Recovered/Resolved]
  - Coma [Recovered/Resolved]
  - Anaemia [Recovered/Resolved]
  - Hypoxia [Recovered/Resolved]
